FAERS Safety Report 17661763 (Version 1)
Quarter: 2020Q2

REPORT INFORMATION
  Report Type: Spontaneous
  Country: US (occurrence: US)
  Receive Date: 20200413
  Receipt Date: 20200413
  Transmission Date: 20200713
  Serious: Yes (Other)
  Sender: FDA-Public Use
  Company Number: US-PFIZER INC-2019303845

PATIENT
  Age: 72 Year
  Sex: Male

DRUGS (4)
  1. LYRICA [Suspect]
     Active Substance: PREGABALIN
     Dosage: 150 GM 1 PO TID
     Route: 048
  2. LYRICA [Suspect]
     Active Substance: PREGABALIN
     Dosage: 450 MG, AS NEEDED (1 CAP 3X/DAY AS NEEDED)
  3. LYRICA [Suspect]
     Active Substance: PREGABALIN
     Dosage: 75 MG, UNK
  4. LYRICA [Suspect]
     Active Substance: PREGABALIN
     Dosage: 300 MG, AS NEEDED (1 CAP 3X/DAY AS NEEDED)
     Dates: start: 20140606

REACTIONS (2)
  - Neoplasm malignant [Unknown]
  - Product prescribing error [Unknown]
